FAERS Safety Report 9518979 (Version 1)
Quarter: 2013Q3

REPORT INFORMATION
  Report Type: Spontaneous
  Country: GB (occurrence: GB)
  Receive Date: 20130912
  Receipt Date: 20130912
  Transmission Date: 20140515
  Serious: Yes (Life-Threatening, Hospitalization, Disabling, Other)
  Sender: FDA-Public Use
  Company Number: GB-ELI_LILLY_AND_COMPANY-GB201309000297

PATIENT
  Age: 73 Year
  Sex: Male

DRUGS (17)
  1. CYMBALTA [Suspect]
     Indication: NEURALGIA
     Dosage: 60 MG, QD
     Route: 048
     Dates: start: 20130808, end: 20130821
  2. AMITRIPTYLINE [Suspect]
     Indication: NEURALGIA
     Dosage: 75 MG, QD
     Route: 048
     Dates: start: 201212, end: 20130820
  3. CITALOPRAM [Suspect]
     Indication: DEPRESSION
     Dosage: 20 MG, QD
     Route: 048
     Dates: start: 20130802, end: 20130820
  4. TRAMADOL [Suspect]
     Indication: PAIN
     Dosage: 200 MG, BID
     Route: 048
     Dates: start: 20130715, end: 20130818
  5. ADCAL D3 [Concomitant]
     Dosage: UNK, UNKNOWN
     Route: 065
  6. ALENDRONATE [Concomitant]
     Dosage: UNK, UNKNOWN
     Route: 065
  7. BISOPROLOL [Concomitant]
     Dosage: UNK, UNKNOWN
     Route: 065
  8. BUMETANIDE [Concomitant]
     Dosage: UNK, UNKNOWN
     Route: 065
  9. DIGOXIN [Concomitant]
     Dosage: UNK, UNKNOWN
     Route: 065
  10. DIHYDROCODEINE [Concomitant]
     Dosage: UNK, UNKNOWN
     Route: 065
  11. GABAPENTIN [Concomitant]
     Dosage: UNK, UNKNOWN
     Route: 065
  12. METFORMIN [Concomitant]
     Dosage: UNK, UNKNOWN
     Route: 065
  13. OMEPRAZOLE [Concomitant]
     Dosage: UNK, UNKNOWN
     Route: 065
  14. PARACETAMOL [Concomitant]
     Dosage: UNK, UNKNOWN
     Route: 065
  15. PREDNISOLONE [Concomitant]
     Dosage: UNK, UNKNOWN
     Route: 065
  16. RAMIPRIL [Concomitant]
     Dosage: UNK, UNKNOWN
     Route: 065
  17. WARFARIN [Concomitant]
     Dosage: UNK, UNKNOWN
     Route: 065

REACTIONS (5)
  - Nystagmus [Unknown]
  - Weight bearing difficulty [Unknown]
  - Dyskinesia [Unknown]
  - Serotonin syndrome [Not Recovered/Not Resolved]
  - Confusional state [Unknown]
